FAERS Safety Report 17564613 (Version 1)
Quarter: 2020Q1

REPORT INFORMATION
  Report Type: Spontaneous
  Country: DE (occurrence: DE)
  Receive Date: 20200320
  Receipt Date: 20200320
  Transmission Date: 20200409
  Serious: Yes (Hospitalization)
  Sender: FDA-Public Use
  Company Number: DE-HIKMA PHARMACEUTICALS USA INC.-DE-H14001-20-50886

PATIENT
  Age: 72 Year
  Sex: Male
  Weight: 68 kg

DRUGS (1)
  1. RIBOCARBO-L [Suspect]
     Active Substance: CARBOPLATIN
     Indication: PRODUCT USED FOR UNKNOWN INDICATION
     Dosage: ()
     Route: 042
     Dates: start: 20200303

REACTIONS (7)
  - Flushing [Recovering/Resolving]
  - Chest discomfort [Recovering/Resolving]
  - Mouth swelling [Recovering/Resolving]
  - Dysarthria [Recovering/Resolving]
  - Conjunctival hyperaemia [Recovering/Resolving]
  - Feeling hot [Recovering/Resolving]
  - Swollen tongue [Recovering/Resolving]

NARRATIVE: CASE EVENT DATE: 20200303
